FAERS Safety Report 24046281 (Version 3)
Quarter: 2024Q3

REPORT INFORMATION
  Report Type: Spontaneous
  Country: US (occurrence: US)
  Receive Date: 20240703
  Receipt Date: 20240722
  Transmission Date: 20241017
  Serious: No
  Sender: JOHNSON AND JOHNSON
  Company Number: US-JNJFOC-20240704664

PATIENT
  Age: 62 Year
  Sex: Male

DRUGS (10)
  1. OPSUMIT [Suspect]
     Active Substance: MACITENTAN
     Indication: Pulmonary arterial hypertension
     Route: 048
  2. UPTRAVI [Suspect]
     Active Substance: SELEXIPAG
     Indication: Product used for unknown indication
     Route: 048
  3. UPTRAVI [Suspect]
     Active Substance: SELEXIPAG
     Indication: Pulmonary arterial hypertension
     Route: 048
     Dates: start: 202207
  4. ADEMPAS [Suspect]
     Active Substance: RIOCIGUAT
     Indication: Product used for unknown indication
     Route: 065
  5. ALBUTEROL [Concomitant]
     Active Substance: ALBUTEROL
  6. PULMICORT TURBUHALER [Concomitant]
     Active Substance: BUDESONIDE
  7. ASPIRIN [Concomitant]
     Active Substance: ASPIRIN
  8. ATORVASTATIN [Concomitant]
     Active Substance: ATORVASTATIN
  9. GLUCOSAMINE [Concomitant]
     Active Substance: GLUCOSAMINE
  10. COLCHICINE [Concomitant]
     Active Substance: COLCHICINE

REACTIONS (4)
  - Dyspnoea [Unknown]
  - Decreased appetite [Unknown]
  - Fatigue [Unknown]
  - Product dose omission issue [Unknown]
